FAERS Safety Report 9402096 (Version 1)
Quarter: 2013Q3

REPORT INFORMATION
  Report Type: Spontaneous
  Country: US (occurrence: US)
  Receive Date: 20130716
  Receipt Date: 20130716
  Transmission Date: 20140515
  Serious: No
  Sender: FDA-Public Use
  Company Number: US-GLAXOSMITHKLINE-A0979308A

PATIENT
  Age: 59 Year
  Sex: Male
  Weight: 82.3 kg

DRUGS (4)
  1. NICORETTE MINIS MINT 4 MG [Suspect]
     Indication: EX-TOBACCO USER
     Route: 002
     Dates: start: 20120513, end: 20120527
  2. METOPROLOL [Concomitant]
  3. LIPITOR [Concomitant]
  4. ANDROGEL [Concomitant]

REACTIONS (3)
  - Skin discolouration [Not Recovered/Not Resolved]
  - Weight decreased [Not Recovered/Not Resolved]
  - Diarrhoea [Not Recovered/Not Resolved]
